FAERS Safety Report 17834216 (Version 2)
Quarter: 2024Q4

REPORT INFORMATION
  Report Type: Spontaneous
  Country: US (occurrence: US)
  Receive Date: 20200528
  Receipt Date: 20241211
  Transmission Date: 20250115
  Serious: No
  Sender: SANOFI AVENTIS
  Company Number: US-SA-2020SA134657

PATIENT
  Age: 15 Year
  Sex: Male

DRUGS (4)
  1. ELOCTATE [Suspect]
     Active Substance: EFMOROCTOCOG ALFA
     Dosage: 1080 IU
     Route: 042
  2. ELOCTATE [Suspect]
     Active Substance: EFMOROCTOCOG ALFA
     Dosage: 1080 IU
     Route: 042
  3. ELOCTATE [Suspect]
     Active Substance: EFMOROCTOCOG ALFA
     Dosage: 1172 UNITS/2344 UNITS, PRN
     Route: 042
  4. ELOCTATE [Suspect]
     Active Substance: EFMOROCTOCOG ALFA
     Dosage: 1172 UNITS/2344 UNITS, PRN
     Route: 042

REACTIONS (3)
  - Fall [Recovered/Resolved]
  - Limb injury [Recovered/Resolved]
  - Scratch [Unknown]

NARRATIVE: CASE EVENT DATE: 20200301
